FAERS Safety Report 20463039 (Version 1)
Quarter: 2022Q1

REPORT INFORMATION
  Report Type: Spontaneous
  Country: US (occurrence: US)
  Receive Date: 20220211
  Receipt Date: 20220211
  Transmission Date: 20220424
  Serious: No
  Sender: FDA-Public Use
  Company Number: US-009507513-2108USA004917

PATIENT
  Sex: Female

DRUGS (6)
  1. ZOSTAVAX [Suspect]
     Active Substance: VARICELLA-ZOSTER VIRUS STRAIN OKA/MERCK LIVE ANTIGEN
     Indication: Prophylaxis
     Dosage: .65 MILLILITER
     Route: 058
     Dates: start: 20140803
  2. STERILE DILUENT (WATER) [Suspect]
     Active Substance: WATER
     Dosage: 0.65 MILLILITER, ONCE
     Route: 058
     Dates: start: 20140803, end: 20140803
  3. PENTASA [Concomitant]
     Active Substance: MESALAMINE
     Indication: Crohn^s disease
     Dosage: 500 MILLIGRAM
     Dates: start: 2002, end: 202106
  4. KLOR-CON [Concomitant]
     Active Substance: POTASSIUM CHLORIDE
     Indication: Crohn^s disease
     Dosage: 20 MILLIGRAM
     Dates: start: 2002, end: 202106
  5. REMICADE [Concomitant]
     Active Substance: INFLIXIMAB
     Indication: Crohn^s disease
     Dosage: UNK
     Dates: start: 2003, end: 2019
  6. TIZANIDINE [Concomitant]
     Active Substance: TIZANIDINE
     Indication: Crohn^s disease
     Dosage: 4 MILLIGRAM
     Dates: start: 2002, end: 202106

REACTIONS (3)
  - Eye infection [Unknown]
  - Pigmentation disorder [Unknown]
  - Herpes zoster [Unknown]

NARRATIVE: CASE EVENT DATE: 20170101
